FAERS Safety Report 16384307 (Version 1)
Quarter: 2019Q3

REPORT INFORMATION
  Report Type: Spontaneous
  Country: US (occurrence: US)
  Receive Date: 20190531
  Receipt Date: 20190531
  Transmission Date: 20191004
  Serious: Yes (Hospitalization, Disabling)
  Sender: FDA-Public Use
  Company Number: None

PATIENT
  Age: 33 Year
  Sex: Female
  Weight: 94.5 kg

DRUGS (12)
  1. TOPAMAX GENERICS [Suspect]
     Active Substance: TOPIRAMATE
     Indication: POST-TRAUMATIC STRESS DISORDER
     Dosage: ?          QUANTITY:2 TABLET(S);OTHER FREQUENCY:1-3 TIMES A DAY;?
     Route: 048
  2. TOPAMAX GENERICS [Suspect]
     Active Substance: TOPIRAMATE
     Indication: EATING DISORDER
     Dosage: ?          QUANTITY:2 TABLET(S);OTHER FREQUENCY:1-3 TIMES A DAY;?
     Route: 048
  3. MINIPRESS [Concomitant]
     Active Substance: PRAZOSIN HYDROCHLORIDE
  4. VYVANSE [Concomitant]
     Active Substance: LISDEXAMFETAMINE DIMESYLATE
  5. DUO-TAB [Concomitant]
  6. TOPAMAX GENERICS [Suspect]
     Active Substance: TOPIRAMATE
     Indication: OBSESSIVE-COMPULSIVE DISORDER
     Dosage: ?          QUANTITY:2 TABLET(S);OTHER FREQUENCY:1-3 TIMES A DAY;?
     Route: 048
  7. HS D3 [Concomitant]
  8. HAIR,SKIN,+ NAILS MULTI VITAMIN-(NATURE^S BOUNTY) [Concomitant]
  9. CLONIDINE. [Concomitant]
     Active Substance: CLONIDINE
  10. PROBIOTIC- ULTIMATE FLORA [Concomitant]
  11. DIAZEPAM. [Concomitant]
     Active Substance: DIAZEPAM
  12. MELATONIN [Concomitant]
     Active Substance: MELATONIN

REACTIONS (5)
  - Drug ineffective [None]
  - Product substitution issue [None]
  - Loss of personal independence in daily activities [None]
  - Insurance issue [None]
  - Off label use [None]
